FAERS Safety Report 19612045 (Version 7)
Quarter: 2022Q2

REPORT INFORMATION
  Report Type: Report from Study
  Country: US (occurrence: US)
  Receive Date: 20210726
  Receipt Date: 20220622
  Transmission Date: 20220721
  Serious: Yes (Other)
  Sender: FDA-Public Use
  Company Number: US-NOVARTISPH-NVSC2021US168311

PATIENT
  Sex: Female

DRUGS (3)
  1. KISQALI FEMARA CO-PACK [Suspect]
     Active Substance: LETROZOLE\RIBOCICLIB
     Indication: Breast cancer metastatic
     Dosage: UNK
     Route: 065
  2. KISQALI FEMARA CO-PACK [Suspect]
     Active Substance: LETROZOLE\RIBOCICLIB
     Dosage: 2 DOSAGE FORM, QD (400 MG) BY MOUTH DAILY FOR 21 DAYS FOLLOWED BY 7 DAYS OFF)
     Route: 048
     Dates: end: 20220530
  3. KISQALI FEMARA CO-PACK [Suspect]
     Active Substance: LETROZOLE\RIBOCICLIB
     Indication: Breast cancer metastatic
     Dosage: 1 DOSAGE FORM, QD
     Route: 048
     Dates: end: 20220530

REACTIONS (12)
  - Arrhythmia [Unknown]
  - Cardiac infection [Unknown]
  - Kidney infection [Unknown]
  - Nausea [Unknown]
  - Constipation [Unknown]
  - Cough [Unknown]
  - Product dose omission issue [Unknown]
  - Fatigue [Unknown]
  - Depression [Unknown]
  - White blood cell count decreased [Unknown]
  - Micturition urgency [Unknown]
  - Infection [Unknown]
